FAERS Safety Report 8221752-9 (Version None)
Quarter: 2012Q1

REPORT INFORMATION
  Report Type: 
  Country: None (occurrence: None)
  Receive Date: 20120320
  Receipt Date: 20120320
  Transmission Date: 20120608
  Serious: Yes (Life-Threatening)
  Sender: FDA-Public Use
  Company Number: None

PATIENT
  Age: 82 Year
  Sex: Male
  Weight: 90.718 kg

DRUGS (1)
  1. SIMVASTATIN [Suspect]

REACTIONS (1)
  - VENTRICULAR EXTRASYSTOLES [None]
